FAERS Safety Report 7714799-X (Version None)
Quarter: 2011Q3

REPORT INFORMATION
  Report Type: 
  Country: None (occurrence: None)
  Receive Date: 20110810
  Receipt Date: 20110527
  Transmission Date: 20111222
  Serious: No
  Sender: FDA-Public Use
  Company Number: 1000021220

PATIENT
  Age: 66 Year
  Sex: Female

DRUGS (9)
  1. FISH OIL (FISH OIL) (FISH OIL) [Concomitant]
  2. SINGULAIR (MONTELUKAST) (MONTELUKAST) [Concomitant]
  3. ALLEGRA (FEXOFENADINE) (FEXOFENADINE) [Concomitant]
  4. COENZYME (COENZYME) (COENZYME) [Concomitant]
  5. SAVELLA [Suspect]
     Indication: MYALGIA
     Dosage: 100 MG (50 MG,2 IN 1 D),ORAL
     Route: 048
     Dates: start: 20090101, end: 20090101
  6. CALCIUM (CALCIUM) (CALCIUM) [Concomitant]
  7. SAVELLA [Suspect]
     Indication: MYALGIA
     Dosage: 12.5 MG (12.5 MG,1 IN 1 D),ORAL ; 25 MG (12.5 MG,2 IN 1 D),ORAL  ; 50 MG (25 MG,2 IN 1 D),ORAL
     Route: 048
     Dates: start: 20090101, end: 20090101
  8. SAVELLA [Suspect]
     Indication: MYALGIA
     Dosage: 12.5 MG (12.5 MG,1 IN 1 D),ORAL ; 25 MG (12.5 MG,2 IN 1 D),ORAL  ; 50 MG (25 MG,2 IN 1 D),ORAL
     Route: 048
     Dates: start: 20090101, end: 20090101
  9. SAVELLA [Suspect]
     Indication: MYALGIA
     Dosage: 12.5 MG (12.5 MG,1 IN 1 D),ORAL ; 25 MG (12.5 MG,2 IN 1 D),ORAL  ; 50 MG (25 MG,2 IN 1 D),ORAL
     Route: 048
     Dates: start: 20090101, end: 20090101

REACTIONS (1)
  - URINARY TRACT INFECTION [None]
